FAERS Safety Report 8900307 (Version 1)
Quarter: 2012Q4

REPORT INFORMATION
  Report Type: 
  Country: CN (occurrence: CN)
  Receive Date: 20121109
  Receipt Date: 20121109
  Transmission Date: 20130627
  Serious: Yes (Other)
  Sender: FDA-Public Use
  Company Number: CN-ABBOTT-12P-035-1005535-00

PATIENT
  Age: 38 Year
  Sex: Female

DRUGS (4)
  1. DEPAKINE CHRONO [Suspect]
     Indication: EPILEPSY
     Route: 048
     Dates: start: 20120528, end: 201208
  2. DEPAKINE CHRONO [Suspect]
     Route: 048
     Dates: start: 201208, end: 20121028
  3. DEPAKINE CHRONO [Suspect]
     Route: 048
     Dates: start: 20121029
  4. HERBAL PREPARATION [Concomitant]
     Indication: PRODUCT USED FOR UNKNOWN INDICATION

REACTIONS (7)
  - Fall [Unknown]
  - Tongue biting [Unknown]
  - Menstrual disorder [Not Recovered/Not Resolved]
  - Confusional state [Unknown]
  - Epilepsy [Recovered/Resolved]
  - Weight increased [Not Recovered/Not Resolved]
  - Alopecia [Recovering/Resolving]
